FAERS Safety Report 10049864 (Version 1)
Quarter: 2014Q2

REPORT INFORMATION
  Report Type: Spontaneous
  Country: JP (occurrence: JP)
  Receive Date: 20140401
  Receipt Date: 20140401
  Transmission Date: 20141212
  Serious: Yes (Hospitalization)
  Sender: FDA-Public Use
  Company Number: 2014SP001726

PATIENT
  Age: 77 Year
  Sex: Female

DRUGS (2)
  1. CISPLATIN [Suspect]
     Indication: GASTRIC CANCER STAGE IV
  2. GIMERACIL W/OTERACIL POTASSIUM/TEGAFUR [Suspect]
     Indication: GASTRIC CANCER STAGE IV

REACTIONS (4)
  - Emphysematous cholecystitis [Unknown]
  - Pyrexia [Unknown]
  - Decreased appetite [Unknown]
  - Abdominal pain [Unknown]
